FAERS Safety Report 20297306 (Version 1)
Quarter: 2022Q1

REPORT INFORMATION
  Report Type: Spontaneous
  Country: US (occurrence: None)
  Receive Date: 20220105
  Receipt Date: 20220105
  Transmission Date: 20220423
  Serious: No
  Sender: FDA-Public Use
  Company Number: US-ROCHE-2878836

PATIENT
  Age: 2 Year
  Sex: Male

DRUGS (1)
  1. HEMLIBRA [Suspect]
     Active Substance: EMICIZUMAB-KXWH
     Indication: Factor VII deficiency
     Dosage: EVERY 14 DAYS
     Route: 058
     Dates: start: 20200129

REACTIONS (3)
  - Eye haemorrhage [Unknown]
  - Eye swelling [Unknown]
  - Pain [Unknown]

NARRATIVE: CASE EVENT DATE: 20210716
